FAERS Safety Report 10496583 (Version 2)
Quarter: 2014Q4

REPORT INFORMATION
  Report Type: Spontaneous
  Country: BR (occurrence: BR)
  Receive Date: 20141005
  Receipt Date: 20141005
  Transmission Date: 20150528
  Serious: Yes (Other)
  Sender: FDA-Public Use
  Company Number: PHHY2014BR123211

PATIENT
  Age: 52 Year
  Sex: Female

DRUGS (4)
  1. VOLTAREN [Suspect]
     Active Substance: DICLOFENAC SODIUM
     Indication: BACK PAIN
     Dosage: 1 DF, DAILY
     Route: 054
  2. VOLTAREN [Suspect]
     Active Substance: DICLOFENAC SODIUM
     Indication: NECK PAIN
  3. TRAMAL [Concomitant]
     Active Substance: TRAMADOL
     Indication: SPINAL PAIN
     Dosage: 2 DF, A DAY
     Route: 048
  4. GABAPENTIN. [Concomitant]
     Active Substance: GABAPENTIN
     Indication: PAIN
     Dosage: UNK, TID
     Route: 048

REACTIONS (3)
  - Back pain [Not Recovered/Not Resolved]
  - Depression [Recovering/Resolving]
  - Intervertebral disc protrusion [Recovering/Resolving]
